FAERS Safety Report 7942190-X (Version None)
Quarter: 2011Q4

REPORT INFORMATION
  Report Type: 
  Country: None (occurrence: None)
  Receive Date: 20111114
  Receipt Date: 20101214
  Transmission Date: 20120403
  Serious: Yes (Death)
  Sender: FDA-Public Use
  Company Number: 2010S1001781

PATIENT
  Age: 53 Year
  Sex: Female

DRUGS (6)
  1. VANCOMYCIN [Concomitant]
  2. MOXIFLOXACIN [Concomitant]
  3. LINEZOLID [Concomitant]
  4. FLUCONAZOLE [Concomitant]
  5. CUBICIN [Suspect]
     Indication: BACTERAEMIA
     Dosage: 10 MG/KG;Q48H;IV
     Route: 042
  6. AMPHOTERICIN B [Concomitant]

REACTIONS (1)
  - CARDIAC ARREST [None]
